FAERS Safety Report 7715844-8 (Version None)
Quarter: 2011Q3

REPORT INFORMATION
  Report Type: 
  Country: None (occurrence: None)
  Receive Date: 20110829
  Receipt Date: 20110829
  Transmission Date: 20111222
  Serious: Yes (Other)
  Sender: FDA-Public Use
  Company Number: None

PATIENT
  Age: 39 Year
  Sex: Female
  Weight: 72.574 kg

DRUGS (1)
  1. LUPRON DEPOT [Suspect]
     Indication: UTERINE LEIOMYOMA
     Dosage: 1 KIT
     Route: 030
     Dates: start: 20100208, end: 20100305

REACTIONS (5)
  - AMNESIA [None]
  - NASOPHARYNGITIS [None]
  - IMMUNE SYSTEM DISORDER [None]
  - DISTURBANCE IN ATTENTION [None]
  - INFLUENZA [None]
